FAERS Safety Report 8135210-3 (Version None)
Quarter: 2012Q1

REPORT INFORMATION
  Report Type: 
  Country: None (occurrence: None)
  Receive Date: 20120214
  Receipt Date: 20120203
  Transmission Date: 20120608
  Serious: Yes (Other)
  Sender: FDA-Public Use
  Company Number: US-ACTELION-A-US2012-59399

PATIENT

DRUGS (3)
  1. COUMADIN [Concomitant]
  2. CALCIUM CHANNEL BLOCKERS [Concomitant]
  3. TRACLEER [Suspect]
     Indication: PULMONARY ARTERIAL HYPERTENSION
     Dosage: 62.5 MG, BID
     Route: 048
     Dates: start: 20111116, end: 20111230

REACTIONS (2)
  - DYSURIA [None]
  - URINARY RETENTION [None]
